FAERS Safety Report 7276049-0 (Version None)
Quarter: 2011Q1

REPORT INFORMATION
  Report Type: 
  Country: None (occurrence: None)
  Receive Date: 20110204
  Receipt Date: 20110128
  Transmission Date: 20110831
  Serious: Yes (Other)
  Sender: FDA-Public Use
  Company Number: B0697932A

PATIENT
  Sex: Female

DRUGS (5)
  1. ASPIRIN [Concomitant]
  2. PEPTAZOL [Concomitant]
  3. AUGMENTIN '125' [Suspect]
     Indication: BRONCHITIS
     Route: 048
     Dates: start: 20100101, end: 20100110
  4. LASIX [Concomitant]
  5. PROPAFENONE HCL [Concomitant]

REACTIONS (1)
  - HALLUCINATION, AUDITORY [None]
